FAERS Safety Report 19896338 (Version 1)
Quarter: 2021Q3

REPORT INFORMATION
  Report Type: Spontaneous
  Country: SE (occurrence: SE)
  Receive Date: 20210929
  Receipt Date: 20210929
  Transmission Date: 20211014
  Serious: Yes (Disabling)
  Sender: FDA-Public Use
  Company Number: SE-PFIZER INC-202101228334

PATIENT
  Age: 72 Year
  Sex: Female

DRUGS (5)
  1. METOPROLOL. [Concomitant]
     Active Substance: METOPROLOL
     Dosage: UNKNOWN
  2. AMIAS [Concomitant]
     Active Substance: CANDESARTAN CILEXETIL
     Dosage: UNKNOWN
  3. INSULIN [Concomitant]
     Active Substance: INSULIN NOS
     Dosage: UNKNOWN
  4. GABAPENTIN. [Suspect]
     Active Substance: GABAPENTIN
     Indication: NEURALGIA
     Dosage: UNKNOWN
     Dates: start: 202005, end: 202005
  5. FUROSEMIDE. [Concomitant]
     Active Substance: FUROSEMIDE
     Dosage: UNKNOWN

REACTIONS (5)
  - Optic nerve injury [Not Recovered/Not Resolved]
  - Eye disorder [Not Recovered/Not Resolved]
  - Retinal haemorrhage [Not Recovered/Not Resolved]
  - Dizziness [Not Recovered/Not Resolved]
  - Blindness [Not Recovered/Not Resolved]

NARRATIVE: CASE EVENT DATE: 202005
